FAERS Safety Report 10082159 (Version 1)
Quarter: 2014Q2

REPORT INFORMATION
  Report Type: Spontaneous
  Country: FR (occurrence: FR)
  Receive Date: 20140416
  Receipt Date: 20140416
  Transmission Date: 20141212
  Serious: Yes (Disabling)
  Sender: FDA-Public Use
  Company Number: FR-UCBSA-117570

PATIENT
  Age: 69 Year
  Sex: Female

DRUGS (3)
  1. VIMPAT [Suspect]
     Indication: EPILEPSY
     Dosage: UNKNOWN FREQUENCY
     Route: 048
     Dates: start: 201204, end: 201304
  2. VIMPAT [Suspect]
     Indication: EPILEPSY
     Dosage: UNKNOWN FREQUENCY
     Route: 048
     Dates: start: 201304
  3. KEPPRA [Suspect]
     Dosage: UNKNOWN FREQUENCY
     Route: 048
     Dates: start: 200909

REACTIONS (6)
  - Ataxia [Recovering/Resolving]
  - Balance disorder [Recovering/Resolving]
  - Insomnia [Not Recovered/Not Resolved]
  - Nightmare [Not Recovered/Not Resolved]
  - Amnestic disorder [Not Recovered/Not Resolved]
  - Hypoaesthesia [Recovering/Resolving]
